FAERS Safety Report 9692372 (Version 1)
Quarter: 2013Q4

REPORT INFORMATION
  Report Type: Spontaneous
  Country: US (occurrence: US)
  Receive Date: 20131118
  Receipt Date: 20131118
  Transmission Date: 20140711
  Serious: No
  Sender: FDA-Public Use
  Company Number: US-PFIZER INC-2013326562

PATIENT
  Age: 55 Year
  Sex: Female
  Weight: 56.7 kg

DRUGS (1)
  1. PREMPRO [Suspect]
     Indication: MENOPAUSE
     Dosage: UNK, 1X/DAY
     Dates: start: 201302, end: 201310

REACTIONS (4)
  - Fatigue [Unknown]
  - Sluggishness [Unknown]
  - Malaise [Unknown]
  - Headache [Unknown]
